FAERS Safety Report 14892790 (Version 1)
Quarter: 2018Q2

REPORT INFORMATION
  Report Type: Spontaneous
  Country: DE (occurrence: DE)
  Receive Date: 20180514
  Receipt Date: 20180514
  Transmission Date: 20180711
  Serious: Yes (Other)
  Sender: FDA-Public Use
  Company Number: PHHY2018DE003331

PATIENT
  Sex: Female

DRUGS (3)
  1. QUILONUM [Concomitant]
     Active Substance: LITHIUM CARBONATE
     Indication: PRODUCT USED FOR UNKNOWN INDICATION
     Dosage: 450 MG, UNK (RETARD FORMULATION)
     Route: 065
  2. QUETIAPIN HEXAL [Suspect]
     Active Substance: QUETIAPINE FUMARATE
     Indication: PRODUCT USED FOR UNKNOWN INDICATION
     Dosage: 100 MG, UNK (100 MG IN THE EVENING)
     Route: 065
  3. MIRTAZAPINE. [Concomitant]
     Active Substance: MIRTAZAPINE
     Indication: PRODUCT USED FOR UNKNOWN INDICATION
     Dosage: 7.5-0-15 MG, UNK
     Route: 065

REACTIONS (4)
  - C-reactive protein increased [Recovering/Resolving]
  - Leukocytosis [Recovering/Resolving]
  - Clostridium difficile infection [Recovering/Resolving]
  - Urethral spasm [Recovering/Resolving]

NARRATIVE: CASE EVENT DATE: 201804
